FAERS Safety Report 8099994-5 (Version None)
Quarter: 2012Q1

REPORT INFORMATION
  Report Type: 
  Country: None (occurrence: None)
  Receive Date: 20120129
  Receipt Date: 20111118
  Transmission Date: 20120608
  Serious: No
  Sender: FDA-Public Use
  Company Number: US-ABBOTT-11P-163-0875842-00

PATIENT
  Sex: Female
  Weight: 19.068 kg

DRUGS (2)
  1. HUMIRA [Suspect]
     Indication: JUVENILE ARTHRITIS
     Dates: start: 20110201
  2. UNKNOWN MEDICATION (NON-ABBOTT) [Suspect]
     Indication: SEDATION
     Dates: start: 20110801, end: 20110801

REACTIONS (5)
  - ARTHRITIS [None]
  - SINUS CONGESTION [None]
  - LUNG INFECTION [None]
  - NASOPHARYNGITIS [None]
  - NASAL CONGESTION [None]
